FAERS Safety Report 4785105-8 (Version None)
Quarter: 2005Q3

REPORT INFORMATION
  Report Type: 
  Country: None (occurrence: None)
  Receive Date: 20050928
  Receipt Date: 20050912
  Transmission Date: 20060218
  Serious: Yes (Death, Hospitalization)
  Sender: FDA-Public Use
  Company Number: EWC050644581

PATIENT
  Age: 72 Year
  Sex: Male
  Weight: 55 kg

DRUGS (8)
  1. OLANZAPINE [Suspect]
     Indication: DEMENTIA
     Dosage: 10 MG/1 DAY
     Dates: start: 20040106, end: 20040218
  2. OLANZAPINE [Suspect]
     Indication: PARKINSON'S DISEASE
     Dosage: 10 MG/1 DAY
     Dates: start: 20040106, end: 20040218
  3. CLOZAPINE [Concomitant]
  4. MADOPAR [Concomitant]
  5. PRAVACHOL [Concomitant]
  6. AMLODIPINE [Concomitant]
  7. ASPIRIN [Concomitant]
  8. TRIHEXYPHENIDYL HCL [Concomitant]

REACTIONS (2)
  - BLOOD GLUCOSE INCREASED [None]
  - COMA [None]
